FAERS Safety Report 13531987 (Version 1)
Quarter: 2017Q2

REPORT INFORMATION
  Report Type: Spontaneous
  Country: FR (occurrence: FR)
  Receive Date: 20170510
  Receipt Date: 20170510
  Transmission Date: 20170830
  Serious: Yes (Hospitalization, Other)
  Sender: FDA-Public Use
  Company Number: FR-GLAXOSMITHKLINE-FR2017GSK066134

PATIENT
  Age: 26 Year
  Sex: Male

DRUGS (8)
  1. SERETIDE [Suspect]
     Active Substance: FLUTICASONE PROPIONATE\SALMETEROL XINAFOATE
     Indication: PRODUCT USED FOR UNKNOWN INDICATION
     Dosage: 1 PUFF(S), 1D
     Route: 055
     Dates: start: 2016
  2. METHADONE [Concomitant]
     Active Substance: METHADONE HYDROCHLORIDE
     Dosage: FOR SEVERAL MONTHS
  3. MORPHINE [Concomitant]
     Active Substance: MORPHINE
     Dosage: FOR SEVERAL MONTHS
  4. FENTANYL. [Concomitant]
     Active Substance: FENTANYL
     Dosage: FOR SEVERAL MONTHS
  5. LIDOCAINE. [Concomitant]
     Active Substance: LIDOCAINE
     Dosage: FOR SEVERAL MONTHS
  6. PARACETAMOL [Concomitant]
     Active Substance: ACETAMINOPHEN
     Dosage: FOR SEVERAL MONTHS
  7. TERBUTALINE [Concomitant]
     Active Substance: TERBUTALINE
     Dosage: FOR SEVERAL MONTHS
  8. MACROGOL [Concomitant]
     Active Substance: POLYETHYLENE GLYCOLS
     Dosage: FOR SEVERAL MONTHS

REACTIONS (1)
  - Osteonecrosis [Not Recovered/Not Resolved]

NARRATIVE: CASE EVENT DATE: 201603
